FAERS Safety Report 8453719 (Version 2)
Quarter: 2013Q1

REPORT INFORMATION
  Report Type: Spontaneous
  Country: US (occurrence: US)
  Receive Date: 20120312
  Receipt Date: 20130314
  Transmission Date: 20140127
  Serious: Yes (Hospitalization, Other)
  Sender: FDA-Public Use
  Company Number: US-ROCHE-1047351

PATIENT
  Sex: Male

DRUGS (2)
  1. ACCUTANE [Suspect]
     Indication: ACNE
     Route: 065
     Dates: start: 199207, end: 199209
  2. ACCUTANE [Suspect]
     Route: 065
     Dates: start: 199306, end: 199312

REACTIONS (7)
  - Crohn^s disease [Unknown]
  - Anal fistula [Unknown]
  - Colitis ulcerative [Unknown]
  - Inflammatory bowel disease [Unknown]
  - Perirectal abscess [Unknown]
  - Injury [Unknown]
  - Irritable bowel syndrome [Unknown]
